FAERS Safety Report 10501500 (Version 3)
Quarter: 2014Q4

REPORT INFORMATION
  Report Type: Spontaneous
  Country: US (occurrence: US)
  Receive Date: 20141007
  Receipt Date: 20141222
  Transmission Date: 20150528
  Serious: Yes (Hospitalization, Other)
  Sender: FDA-Public Use
  Company Number: US-AMGEN INC.-USASL2014076087

PATIENT
  Age: 68 Year
  Sex: Male

DRUGS (2)
  1. METHOTREXATE [Concomitant]
     Active Substance: METHOTREXATE
     Dosage: UNK
  2. ENBREL [Suspect]
     Active Substance: ETANERCEPT
     Indication: RHEUMATOID ARTHRITIS
     Dosage: 50 MG, QWK
     Route: 065
     Dates: start: 20031101

REACTIONS (12)
  - Gallbladder operation [Recovered/Resolved]
  - Cataract [Recovered/Resolved]
  - Intestinal obstruction [Recovered/Resolved]
  - Peripheral swelling [Not Recovered/Not Resolved]
  - Thrombosis [Unknown]
  - Malaise [Not Recovered/Not Resolved]
  - Heart rate abnormal [Not Recovered/Not Resolved]
  - Haemoglobin decreased [Unknown]
  - Hip arthroplasty [Recovered/Resolved]
  - Diarrhoea [Not Recovered/Not Resolved]
  - Knee arthroplasty [Recovered/Resolved]
  - Faeces discoloured [Unknown]

NARRATIVE: CASE EVENT DATE: 2004
